FAERS Safety Report 18040051 (Version 2)
Quarter: 2021Q1

REPORT INFORMATION
  Report Type: Spontaneous
  Country: US (occurrence: US)
  Receive Date: 20200717
  Receipt Date: 20210106
  Transmission Date: 20210419
  Serious: Yes (Life-Threatening, Hospitalization, Other)
  Sender: FDA-Public Use
  Company Number: US-PFIZER INC-2020142149

PATIENT
  Age: 25 Year
  Sex: Male

DRUGS (1)
  1. TESTOSTERONE CIPIONATE [Suspect]
     Active Substance: TESTOSTERONE
     Dosage: UNK (SEVERAL YEARS FOR BODYBUILDING)
     Route: 030

REACTIONS (5)
  - Acute myocardial infarction [Unknown]
  - Renal artery thrombosis [Unknown]
  - Drug abuse [Unknown]
  - Renal embolism [Unknown]
  - Renal infarct [Unknown]
